FAERS Safety Report 7435571-4 (Version None)
Quarter: 2011Q2

REPORT INFORMATION
  Report Type: 
  Country: None (occurrence: None)
  Receive Date: 20110418
  Receipt Date: 20110401
  Transmission Date: 20111010
  Serious: Yes (Death)
  Sender: FDA-Public Use
  Company Number: AE 2011-140

PATIENT
  Age: 37 Year
  Sex: Female

DRUGS (3)
  1. CLOZAPINE [Suspect]
     Dosage: 450 MG DAILY PO
     Route: 048
  2. DIHYDROCODEINE BITARTRATE INJ [Concomitant]
  3. VENLAFAXINE [Concomitant]

REACTIONS (7)
  - HEPATIC STEATOSIS [None]
  - SOMNOLENCE [None]
  - HEPATIC NECROSIS [None]
  - TOXICITY TO VARIOUS AGENTS [None]
  - ABDOMINAL PAIN UPPER [None]
  - GENERAL PHYSICAL HEALTH DETERIORATION [None]
  - CIRCULATORY COLLAPSE [None]
